FAERS Safety Report 6227182-3 (Version None)
Quarter: 2009Q2

REPORT INFORMATION
  Report Type: 
  Country: None (occurrence: None)
  Receive Date: 20090612
  Receipt Date: 20090602
  Transmission Date: 20091009
  Serious: Yes (Other)
  Sender: FDA-Public Use
  Company Number: ES-CELGENEUS-144-21880-09060351

PATIENT
  Sex: Male

DRUGS (5)
  1. REVLIMID [Suspect]
     Indication: MULTIPLE MYELOMA
     Route: 048
     Dates: start: 20080913
  2. REVLIMID [Suspect]
     Route: 048
     Dates: start: 20081105
  3. REVLIMID [Suspect]
     Route: 048
  4. ARANESP [Concomitant]
     Indication: MULTIPLE MYELOMA
     Route: 065
  5. NEUPOGEN 30 [Concomitant]
     Indication: MULTIPLE MYELOMA
     Route: 065

REACTIONS (2)
  - HYPERTRANSAMINASAEMIA [None]
  - RASH [None]
